FAERS Safety Report 14225074 (Version 1)
Quarter: 2017Q4

REPORT INFORMATION
  Report Type: Report from Study
  Country: JP (occurrence: JP)
  Receive Date: 20171127
  Receipt Date: 20171127
  Transmission Date: 20180321
  Serious: Yes (Other)
  Sender: FDA-Public Use
  Company Number: JP-ROCHE-2030721

PATIENT
  Sex: Female

DRUGS (2)
  1. TRASTUZUMAB. [Suspect]
     Active Substance: TRASTUZUMAB
     Indication: HER-2 POSITIVE BREAST CANCER
     Route: 065
  2. ERIBULIN [Suspect]
     Active Substance: ERIBULIN
     Indication: HER-2 POSITIVE BREAST CANCER
     Route: 065

REACTIONS (6)
  - Leukopenia [Unknown]
  - Peripheral sensory neuropathy [Unknown]
  - Fatigue [Unknown]
  - Neutropenia [Unknown]
  - Decreased appetite [Unknown]
  - Alanine aminotransferase increased [Unknown]
